FAERS Safety Report 7722243-1 (Version None)
Quarter: 2011Q3

REPORT INFORMATION
  Report Type: 
  Country: None (occurrence: None)
  Receive Date: 20110831
  Receipt Date: 20110829
  Transmission Date: 20111222
  Serious: Yes (Death, Hospitalization, Other)
  Sender: FDA-Public Use
  Company Number: US-AMGEN-USASP2011040334

PATIENT
  Age: 82 Year
  Sex: Male

DRUGS (1)
  1. NPLATE [Suspect]
     Indication: IDIOPATHIC THROMBOCYTOPENIC PURPURA
     Dosage: 2 MUG/KG, UNK
     Dates: start: 20100811, end: 20110130

REACTIONS (7)
  - PNEUMONIA [None]
  - ENTEROCOCCAL INFECTION [None]
  - SEPSIS [None]
  - BACTERAEMIA [None]
  - HOSPITALISATION [None]
  - RESPIRATORY FAILURE [None]
  - GLOMERULONEPHROPATHY [None]
